FAERS Safety Report 4434110-X (Version None)
Quarter: 2004Q3

REPORT INFORMATION
  Report Type: 
  Country: None (occurrence: None)
  Receive Date: 20040825
  Receipt Date: 20040810
  Transmission Date: 20050211
  Serious: Yes (Hospitalization)
  Sender: FDA-Public Use
  Company Number: USA040875188

PATIENT
  Age: 7 Year
  Sex: Male

DRUGS (2)
  1. STRATTERA [Suspect]
     Indication: ATTENTION DEFICIT/HYPERACTIVITY DISORDER
     Dosage: 25 MG/ 1 DAY
     Dates: start: 20040601
  2. MONTELUKAST [Concomitant]

REACTIONS (4)
  - AGITATION [None]
  - HALLUCINATION, AUDITORY [None]
  - MANIA [None]
  - PSYCHOTIC DISORDER [None]
